FAERS Safety Report 18310604 (Version 2)
Quarter: 2020Q4

REPORT INFORMATION
  Report Type: Report from Study
  Country: None (occurrence: US)
  Receive Date: 20200924
  Receipt Date: 20201210
  Transmission Date: 20210113
  Serious: No
  Sender: FDA-Public Use
  Company Number: US-ABBVIE-20K-163-3578576-00

PATIENT
  Age: 24 Year
  Sex: Male
  Weight: 104.42 kg

DRUGS (4)
  1. SKYRIZI [Suspect]
     Active Substance: RISANKIZUMAB-RZAA
     Route: 058
  2. CEPHALEXIN. [Suspect]
     Active Substance: CEPHALEXIN
     Indication: INFECTION PROPHYLAXIS
     Route: 058
     Dates: start: 20200322, end: 202003
  3. SKYRIZI [Suspect]
     Active Substance: RISANKIZUMAB-RZAA
     Indication: PSORIASIS
     Route: 058
     Dates: start: 20190905, end: 201909
  4. SKYRIZI [Suspect]
     Active Substance: RISANKIZUMAB-RZAA
     Route: 058

REACTIONS (8)
  - Pyrexia [Recovered/Resolved]
  - Nasal septum deviation [Recovered/Resolved]
  - Nausea [Recovered/Resolved]
  - Fatigue [Recovered/Resolved]
  - Constipation [Recovered/Resolved]
  - SARS-CoV-2 test negative [Recovered/Resolved]
  - Suspected COVID-19 [Recovered/Resolved]
  - Cough [Recovered/Resolved]

NARRATIVE: CASE EVENT DATE: 201912
